FAERS Safety Report 6579986-5 (Version None)
Quarter: 2010Q1

REPORT INFORMATION
  Report Type: 
  Country: None (occurrence: None)
  Receive Date: 20100203
  Receipt Date: 20100122
  Transmission Date: 20100710
  Serious: Yes (Other)
  Sender: FDA-Public Use
  Company Number: WAES 1001USA03615

PATIENT

DRUGS (2)
  1. FOSAMAX [Suspect]
     Dosage: 70 MG/WKY, PO
     Route: 048
  2. ALFACALCIDOL [Suspect]
     Dosage: 0.5 MICROGM/DAILY, PO
     Route: 048

REACTIONS (1)
  - SPINAL FRACTURE [None]
